FAERS Safety Report 8262271-3 (Version None)
Quarter: 2012Q2

REPORT INFORMATION
  Report Type: 
  Country: None (occurrence: None)
  Receive Date: 20120405
  Receipt Date: 20120329
  Transmission Date: 20120825
  Serious: Yes (Death, Life-Threatening)
  Sender: FDA-Public Use
  Company Number: US-ELI_LILLY_AND_COMPANY-US201203009374

PATIENT
  Sex: Male

DRUGS (2)
  1. EFFIENT [Suspect]
     Indication: THROMBOSIS IN DEVICE
     Dosage: 60 MG, UNK
     Dates: start: 20120326, end: 20120326
  2. PLAVIX [Concomitant]
     Dosage: 600 MG, UNK

REACTIONS (2)
  - DEATH [None]
  - INTRA-AORTIC BALLOON PLACEMENT [None]
